FAERS Safety Report 12861882 (Version 3)
Quarter: 2017Q1

REPORT INFORMATION
  Report Type: Spontaneous
  Country: KR (occurrence: KR)
  Receive Date: 20161019
  Receipt Date: 20170104
  Transmission Date: 20170428
  Serious: Yes (Hospitalization, Other)
  Sender: FDA-Public Use
  Company Number: KR-009507513-1610PRK008143

PATIENT
  Age: 66 Year
  Sex: Male
  Weight: 82 kg

DRUGS (10)
  1. IMOTUN [Concomitant]
     Active Substance: AVOCADO\SOYBEAN OIL
     Indication: OSTEOARTHRITIS
     Dosage: 300 MG, BID
     Route: 048
     Dates: start: 20141104
  2. CELEBREX [Concomitant]
     Active Substance: CELECOXIB
     Indication: OSTEOARTHRITIS
     Dosage: 200 MG, QD
     Route: 048
     Dates: start: 20150602
  3. LANSTON [Concomitant]
     Active Substance: LANSOPRAZOLE
     Indication: PROPHYLAXIS AGAINST GASTROINTESTINAL ULCER
     Dosage: 15 MG, QD
     Route: 048
     Dates: start: 20131125
  4. APROVEL [Concomitant]
     Active Substance: IRBESARTAN
     Indication: MYOCARDIAL INFARCTION
     Dosage: 150 MG, QD
     Route: 048
     Dates: start: 20141013
  5. PROMAC (POLAPREZINC) [Concomitant]
     Active Substance: POLAPREZINC
     Indication: PROPHYLAXIS AGAINST GASTROINTESTINAL ULCER
     Dosage: 75 MG, QD
     Route: 048
     Dates: start: 20150602
  6. ATOZET [Suspect]
     Active Substance: ATORVASTATIN CALCIUM\EZETIMIBE
     Indication: PRIMARY HYPERCHOLESTEROLAEMIA
     Dosage: 1 TABLET, QD
     Route: 048
     Dates: start: 20160215, end: 20160906
  7. HERBEN RETARD [Concomitant]
     Indication: MYOCARDIAL INFARCTION
     Dosage: 90 MG, QD
     Route: 048
     Dates: start: 20131127
  8. MOLSITON [Concomitant]
     Indication: MYOCARDIAL INFARCTION
     Dosage: 4 MG, BID
     Route: 048
     Dates: start: 20131127
  9. BIO ASTRIX [Concomitant]
     Indication: THROMBOSIS PROPHYLAXIS
     Dosage: 100 MG, QD
     Route: 048
     Dates: start: 20150421
  10. PLAVIX [Concomitant]
     Active Substance: CLOPIDOGREL BISULFATE
     Indication: THROMBOSIS PROPHYLAXIS
     Dosage: 75 MG, QD
     Route: 048
     Dates: start: 20150421

REACTIONS (2)
  - Intracranial aneurysm [Recovered/Resolved]
  - Vitamin D deficiency [Recovering/Resolving]

NARRATIVE: CASE EVENT DATE: 20160523
